FAERS Safety Report 8341322-1 (Version None)
Quarter: 2012Q2

REPORT INFORMATION
  Report Type: 
  Country: None (occurrence: None)
  Receive Date: 20120507
  Receipt Date: 20120426
  Transmission Date: 20120825
  Serious: Yes (Hospitalization)
  Sender: FDA-Public Use
  Company Number: CA-JNJFOC-20120412624

PATIENT
  Age: 29 Year
  Sex: Male
  Weight: 72.58 kg

DRUGS (1)
  1. BENADRYL REGULAR STRENGTH ALLERGY [Suspect]
     Indication: RASH
     Dosage: UPC :060093265717
     Route: 048
     Dates: start: 20120423, end: 20120423

REACTIONS (3)
  - LOSS OF CONSCIOUSNESS [None]
  - HYPERSENSITIVITY [None]
  - OFF LABEL USE [None]
